FAERS Safety Report 12931533 (Version 4)
Quarter: 2017Q2

REPORT INFORMATION
  Report Type: Spontaneous
  Country: JP (occurrence: JP)
  Receive Date: 20161110
  Receipt Date: 20170617
  Transmission Date: 20170830
  Serious: Yes (Hospitalization, Other)
  Sender: FDA-Public Use
  Company Number: JP-AMGEN-JPNSP2016158508

PATIENT
  Age: 74 Year
  Sex: Female
  Weight: 43 kg

DRUGS (10)
  1. DENOTAS [Concomitant]
     Active Substance: CALCIUM CARBONATE\CHOLECALCIFEROL\MAGNESIUM CARBONATE
     Dosage: UNK
     Route: 065
     Dates: start: 20160621
  2. DOCETAXEL. [Suspect]
     Active Substance: DOCETAXEL
     Indication: LUNG NEOPLASM MALIGNANT
     Dosage: 80 MG, QD
     Route: 041
     Dates: start: 20160906, end: 20160906
  3. FAMOTIDINE. [Concomitant]
     Active Substance: FAMOTIDINE
     Dosage: 20 MG, QD
     Route: 048
     Dates: start: 20150513
  4. CYRAMZA [Concomitant]
     Active Substance: RAMUCIRUMAB
     Indication: LUNG NEOPLASM MALIGNANT
     Dosage: 450 MG, QD
     Route: 041
     Dates: start: 20160906, end: 20160906
  5. RANMARK [Suspect]
     Active Substance: DENOSUMAB
     Indication: METASTASES TO BONE
     Dosage: 120 MG, Q4WK
     Route: 058
     Dates: start: 20160614, end: 20161018
  6. OPDIVO [Suspect]
     Active Substance: NIVOLUMAB
     Dosage: 136 MG, QD
     Route: 041
     Dates: start: 20170418
  7. LOBU [Concomitant]
     Active Substance: LOBUCAVIR
     Dosage: UNK
     Route: 048
     Dates: start: 20160415
  8. POLAPREZINC [Concomitant]
     Active Substance: POLAPREZINC
     Dosage: 75 MG, BID
     Route: 048
     Dates: start: 20140509
  9. MOHRUS [Concomitant]
     Active Substance: KETOPROFEN
     Dosage: UNK
     Route: 050
  10. OPDIVO [Suspect]
     Active Substance: NIVOLUMAB
     Indication: LUNG NEOPLASM MALIGNANT
     Dosage: 130 MG, Q2WK
     Route: 041
     Dates: start: 20160517, end: 20160726

REACTIONS (2)
  - Febrile neutropenia [Recovered/Resolved]
  - Stomatitis [Recovered/Resolved]

NARRATIVE: CASE EVENT DATE: 2016
